FAERS Safety Report 17613858 (Version 1)
Quarter: 2020Q2

REPORT INFORMATION
  Report Type: Spontaneous
  Country: DK (occurrence: DK)
  Receive Date: 20200402
  Receipt Date: 20200402
  Transmission Date: 20200713
  Serious: Yes (Hospitalization)
  Sender: FDA-Public Use
  Company Number: DK-BRISTOL-MYERS SQUIBB COMPANY-BMS-2020-026690

PATIENT
  Age: 82 Year
  Sex: Female

DRUGS (16)
  1. POTASSIUM CHLORIDE. [Concomitant]
     Active Substance: POTASSIUM CHLORIDE
     Indication: MINERAL SUPPLEMENTATION
     Dosage: 1500 MILLIGRAM DAILY
     Route: 048
     Dates: start: 20190522
  2. ISOSORBIDE MONONITRATE. [Concomitant]
     Active Substance: ISOSORBIDE MONONITRATE
     Indication: CARDIAC DISORDER
     Dosage: 30 MILLIGRAM DAILY
     Route: 048
     Dates: start: 20181214
  3. CALCIPOTRIOL SANDOZ [Concomitant]
     Active Substance: CALCIPOTRIENE
     Indication: PSORIASIS
     Dosage: 1 DOSAGE FORM DAILY
     Route: 061
     Dates: start: 20181210
  4. ELIQUIS [Suspect]
     Active Substance: APIXABAN
     Indication: THROMBOSIS PROPHYLAXIS
     Dosage: 10 MILLIGRAM DAILY
     Route: 048
     Dates: start: 20190606, end: 20200305
  5. MORPHINE [Concomitant]
     Active Substance: MORPHINE
     Indication: DYSPNOEA
     Dosage: 2 DOSAGE FORM AS NECESSARY
     Route: 048
     Dates: start: 20190822
  6. GLYCERYLNITRAT [Concomitant]
     Indication: ANGINA PECTORIS
     Dosage: 2 DOSAGE FORM AS NECESSARY
     Route: 048
     Dates: start: 20181214
  7. SALBUTAMOL [Concomitant]
     Active Substance: ALBUTEROL
     Indication: BRONCHOSPASM
     Dosage: 4 DOSAGE FORM DAILY
     Route: 065
     Dates: start: 20200131
  8. FUROSEMIDE. [Concomitant]
     Active Substance: FUROSEMIDE
     Indication: DIURETIC THERAPY
     Dosage: 80 MILLIGRAM DAILY
     Route: 048
     Dates: start: 20190522
  9. PARACETAMOL [Concomitant]
     Active Substance: ACETAMINOPHEN
     Indication: PAIN
     Dosage: 1000 MILLIGRAM AS NECESSARY
     Route: 048
     Dates: start: 20181022
  10. PANTOPRAZOLE [Concomitant]
     Active Substance: PANTOPRAZOLE
     Indication: PROPHYLAXIS AGAINST GASTROINTESTINAL ULCER
     Dosage: 40 MILLIGRAM DAILY
     Route: 048
     Dates: start: 20191217
  11. METOCLOPRAMIDE ORION [Interacting]
     Active Substance: METOCLOPRAMIDE HYDROCHLORIDE
     Indication: NAUSEA
     Dosage: 30 MILLIGRAM DAILY
     Route: 048
     Dates: start: 20191028, end: 20200305
  12. MAGNESIUM HYDROXIDE. [Concomitant]
     Active Substance: MAGNESIUM HYDROXIDE
     Indication: PRODUCT USED FOR UNKNOWN INDICATION
     Dosage: UNK
     Route: 065
  13. METOPROLOL. [Concomitant]
     Active Substance: METOPROLOL
     Indication: ARRHYTHMIA
     Dosage: 200 MILLIGRAM DAILY
     Route: 048
     Dates: start: 20190930
  14. SERTRALINE [Concomitant]
     Active Substance: SERTRALINE HYDROCHLORIDE
     Indication: DEPRESSION
     Dosage: 100 MILLIGRAM DAILY
     Route: 048
     Dates: start: 20180606
  15. SPIRONOLACTONE. [Concomitant]
     Active Substance: SPIRONOLACTONE
     Indication: DIURETIC THERAPY
     Dosage: 100 MILLIGRAM DAILY
     Route: 048
     Dates: start: 20190724
  16. FLUANXOL [FLUPENTIXOL DECANOATE] [Concomitant]
     Active Substance: FLUPENTIXOL DECANOATE
     Indication: DEPRESSION
     Dosage: 1 MILLIGRAM DAILY
     Route: 048
     Dates: start: 20180606

REACTIONS (4)
  - Anaemia [Recovering/Resolving]
  - Haemoglobin decreased [Recovering/Resolving]
  - Drug interaction [Unknown]
  - Iron deficiency anaemia [Recovering/Resolving]

NARRATIVE: CASE EVENT DATE: 2019
